FAERS Safety Report 7000588-0 (Version None)
Quarter: 2010Q3

REPORT INFORMATION
  Report Type: 
  Country: None (occurrence: None)
  Receive Date: 20100920
  Receipt Date: 20100713
  Transmission Date: 20110219
  Serious: No
  Sender: FDA-Public Use
  Company Number: US-ASTRAZENECA-2010SE01404

PATIENT
  Age: 63 Year
  Sex: Male
  Weight: 104.3 kg

DRUGS (10)
  1. SEROQUEL [Suspect]
     Indication: DEPRESSION
     Route: 048
     Dates: start: 20091001
  2. PULMICORT [Concomitant]
  3. ALBUTEROL [Concomitant]
  4. CLONIDINE [Concomitant]
     Indication: HYPERTENSION
  5. HYDRALAZINE HCL [Concomitant]
     Indication: HYPERTENSION
  6. LABETALOL HCL [Concomitant]
     Indication: HYPERTENSION
  7. SPIRIVA [Concomitant]
  8. AMITRIPTYLINE [Concomitant]
  9. XANAX [Concomitant]
     Indication: ANXIETY
  10. EFFECTIN [Concomitant]

REACTIONS (9)
  - ANXIETY [None]
  - CATARACT [None]
  - DEPRESSED MOOD [None]
  - DISORIENTATION [None]
  - DIZZINESS [None]
  - DRUG DOSE OMISSION [None]
  - INSOMNIA [None]
  - SEDATION [None]
  - SENSATION OF HEAVINESS [None]
